FAERS Safety Report 5793424-1 (Version None)
Quarter: 2008Q2

REPORT INFORMATION
  Report Type: 
  Country: None (occurrence: None)
  Receive Date: 20080627
  Receipt Date: 20080617
  Transmission Date: 20081010
  Serious: Yes (Other)
  Sender: FDA-Public Use
  Company Number: IT-JNJFOC-20080602812

PATIENT
  Age: 52 Year
  Sex: Male

DRUGS (3)
  1. DOXORUBICIN HCL [Suspect]
     Indication: KAPOSI'S SARCOMA
     Dosage: RECEIVED UP TO 10 CYCLES OF THERAPY
     Route: 042
  2. LAMIVUDINE [Suspect]
     Indication: HIV INFECTION
     Route: 065
  3. LOPINAVIR [Suspect]
     Indication: HIV INFECTION
     Route: 065

REACTIONS (2)
  - OSTEOPOROSIS [None]
  - SPINAL FRACTURE [None]
